FAERS Safety Report 4690886-8 (Version None)
Quarter: 2005Q2

REPORT INFORMATION
  Report Type: 
  Country: None (occurrence: None)
  Receive Date: 20050615
  Receipt Date: 20050606
  Transmission Date: 20051028
  Serious: Yes (Hospitalization)
  Sender: FDA-Public Use
  Company Number: PHRM2005FR01759

PATIENT
  Age: 84 Year
  Sex: Female

DRUGS (6)
  1. ATARAX [Suspect]
     Route: 048
     Dates: end: 20050507
  2. TEMESTA [Suspect]
     Route: 048
     Dates: end: 20050507
  3. LODALES [Suspect]
     Route: 048
  4. LESCOL [Suspect]
     Indication: HYPERCHOLESTEROLAEMIA
     Dosage: UNK, UNK
     Route: 048
     Dates: end: 20050507
  5. CORDARONE [Suspect]
     Indication: ATRIAL FIBRILLATION
     Route: 048
     Dates: end: 20050507
  6. PREVISCAN [Suspect]
     Route: 048
     Dates: end: 20050506

REACTIONS (5)
  - DRUG INTERACTION [None]
  - FALL [None]
  - INTERNATIONAL NORMALISED RATIO INCREASED [None]
  - LOSS OF CONSCIOUSNESS [None]
  - SUBDURAL HAEMATOMA [None]
